FAERS Safety Report 8179321-5 (Version None)
Quarter: 2012Q1

REPORT INFORMATION
  Report Type: 
  Country: None (occurrence: None)
  Receive Date: 20120229
  Receipt Date: 20120229
  Transmission Date: 20120608
  Serious: No
  Sender: FDA-Public Use
  Company Number: None

PATIENT
  Age: 81 Year
  Sex: Male
  Weight: 121.564 kg

DRUGS (1)
  1. ACTOS [Suspect]
     Indication: DIABETES MELLITUS MANAGEMENT
     Dosage: 30 MG 1 PER DAY MOUTH
     Route: 048
     Dates: start: 20080101, end: 20120101

REACTIONS (9)
  - HEADACHE [None]
  - MYALGIA [None]
  - OROPHARYNGEAL PAIN [None]
  - DECREASED APPETITE [None]
  - VISUAL IMPAIRMENT [None]
  - POLLAKIURIA [None]
  - DRUG HYPERSENSITIVITY [None]
  - FATIGUE [None]
  - NASOPHARYNGITIS [None]
